FAERS Safety Report 25482931 (Version 3)
Quarter: 2025Q3

REPORT INFORMATION
  Report Type: Spontaneous
  Country: EU (occurrence: EU)
  Receive Date: 20250626
  Receipt Date: 20250729
  Transmission Date: 20251021
  Serious: Yes (Hospitalization, Other)
  Sender: AUROBINDO
  Company Number: EU-BRISTOL-MYERS SQUIBB COMPANY-2025-080132

PATIENT
  Age: 61 Year
  Sex: Male
  Weight: 57 kg

DRUGS (7)
  1. OXALIPLATIN [Suspect]
     Active Substance: OXALIPLATIN
     Indication: Oesophageal squamous cell carcinoma
     Route: 042
     Dates: start: 20240813, end: 20250430
  2. OPDIVO [Suspect]
     Active Substance: NIVOLUMAB
     Indication: Oesophageal squamous cell carcinoma
     Route: 042
     Dates: start: 20240813, end: 20250430
  3. FLUOROURACIL [Suspect]
     Active Substance: FLUOROURACIL
     Indication: Oesophageal squamous cell carcinoma
     Route: 065
     Dates: start: 20240813, end: 20250430
  4. FLUOROURACIL [Suspect]
     Active Substance: FLUOROURACIL
     Route: 042
     Dates: start: 20240813, end: 20250430
  5. DEXAMETHASONE [Concomitant]
     Active Substance: DEXAMETHASONE
     Indication: Prophylaxis
     Dosage: 8 MILLIGRAM, ONCE A DAY(1 DAILY)
     Route: 042
     Dates: start: 20240812, end: 20240812
  6. LEUCOVORIN [Concomitant]
     Active Substance: LEUCOVORIN\LEUCOVORIN CALCIUM
     Indication: Prophylaxis
     Dosage: 740 MILLIGRAM, EVERY WEEK((MEDICATION: FOLINIC ACID BI-WEEKLY))
     Route: 042
     Dates: start: 20240813
  7. GRANISETRON [Concomitant]
     Active Substance: GRANISETRON
     Indication: Prophylaxis
     Dosage: 1 MILLILITER, ONCE A DAY(1 DAILY)
     Route: 048
     Dates: start: 20240812, end: 20240812

REACTIONS (7)
  - Aphasia [Recovered/Resolved]
  - Hypokalaemia [Unknown]
  - Thrombocytopenia [Unknown]
  - Malaise [Unknown]
  - Speech disorder [Unknown]
  - Confusional state [Unknown]
  - Hypocalcaemia [Unknown]

NARRATIVE: CASE EVENT DATE: 20250514
